FAERS Safety Report 6103922-9 (Version None)
Quarter: 2009Q1

REPORT INFORMATION
  Report Type: 
  Country: None (occurrence: None)
  Receive Date: 20090305
  Receipt Date: 20090227
  Transmission Date: 20090719
  Serious: Yes (Death, Hospitalization)
  Sender: FDA-Public Use
  Company Number: A0770796A

PATIENT
  Sex: Female
  Weight: 106.8 kg

DRUGS (1)
  1. AVANDIA [Suspect]
     Route: 065
     Dates: start: 20060101, end: 20070101

REACTIONS (3)
  - ANGIOPATHY [None]
  - CEREBROVASCULAR ACCIDENT [None]
  - CIRCULATORY COLLAPSE [None]
